FAERS Safety Report 6494469-9 (Version None)
Quarter: 2009Q4

REPORT INFORMATION
  Report Type: 
  Country: None (occurrence: None)
  Receive Date: 20091214
  Receipt Date: 20090220
  Transmission Date: 20100525
  Serious: No
  Sender: FDA-Public Use
  Company Number: US-BRISTOL-MYERS SQUIBB COMPANY-14515282

PATIENT
  Age: 73 Year
  Sex: Female

DRUGS (8)
  1. ABILIFY [Suspect]
     Indication: BIPOLAR DISORDER
     Dosage: 1 DOSAGE FORM = 5-15(UNITS NOT SPECIFIED)
     Dates: start: 20061001
  2. BUPROPION HCL [Concomitant]
  3. TOPAMAX [Concomitant]
  4. MOBIC [Concomitant]
  5. ASPIRIN [Concomitant]
  6. CALCIUM + VITAMIN D [Concomitant]
  7. OMEPRAZOLE [Concomitant]
  8. LAMOTRIGINE [Concomitant]

REACTIONS (2)
  - DYSTONIA [None]
  - RASH [None]
